FAERS Safety Report 10082588 (Version 1)
Quarter: 2014Q2

REPORT INFORMATION
  Report Type: Spontaneous
  Country: CN (occurrence: CN)
  Receive Date: 20140416
  Receipt Date: 20140416
  Transmission Date: 20141212
  Serious: Yes (Hospitalization, Other)
  Sender: FDA-Public Use
  Company Number: CN-PFIZER INC-2014101382

PATIENT
  Age: 73 Year
  Sex: Female
  Weight: 75 kg

DRUGS (5)
  1. GLUCOTROL XL [Suspect]
     Indication: DIABETES MELLITUS
     Dosage: 5 MG, 1X/DAY
     Route: 048
     Dates: start: 20130109, end: 20130310
  2. OXYTETRACYCLINE [Suspect]
     Indication: HYPERTENSION
     Dosage: 0.5 G, 2X/DAY
     Route: 048
     Dates: start: 20130109, end: 20130310
  3. OXYTETRACYCLINE [Suspect]
     Indication: DIABETES MELLITUS
  4. BENAZEPRIL HYDROCHLORIDE [Concomitant]
     Indication: HYPERTENSION
     Dosage: 10 MG, 1X/DAY
     Route: 048
     Dates: start: 20130109, end: 20130310
  5. BENAZEPRIL HYDROCHLORIDE [Concomitant]
     Indication: DIABETES MELLITUS

REACTIONS (2)
  - Haemoglobin decreased [Recovering/Resolving]
  - Platelet count decreased [Recovering/Resolving]
